FAERS Safety Report 9498476 (Version 2)
Quarter: 2014Q2

REPORT INFORMATION
  Report Type: Report from Study
  Country: CA (occurrence: CA)
  Receive Date: 20130904
  Receipt Date: 20140523
  Transmission Date: 20141212
  Serious: Yes (Other)
  Sender: FDA-Public Use
  Company Number: CA-JNJFOC-20130900072

PATIENT
  Age: 42 Year
  Sex: Female
  Weight: 88 kg

DRUGS (9)
  1. REMICADE [Suspect]
     Indication: COLITIS
     Route: 042
     Dates: start: 20090903
  2. CIPRALEX [Concomitant]
     Indication: DEPRESSION
     Route: 048
  3. ATACAND [Concomitant]
     Indication: BLOOD PRESSURE
     Route: 048
  4. VIT D [Concomitant]
     Route: 048
  5. COPAXONE [Concomitant]
     Indication: MULTIPLE SCLEROSIS
     Route: 065
  6. B12 INJECTION [Concomitant]
     Route: 065
  7. SALOFALK [Concomitant]
     Route: 065
  8. CALCIUM CARBONATE [Concomitant]
     Route: 065
  9. IMURAN [Concomitant]
     Route: 048

REACTIONS (1)
  - Crohn^s disease [Not Recovered/Not Resolved]
